FAERS Safety Report 15268597 (Version 1)
Quarter: 2018Q3

REPORT INFORMATION
  Report Type: Spontaneous
  Country: US (occurrence: US)
  Receive Date: 20180726
  Receipt Date: 20180726
  Transmission Date: 20181010
  Serious: Yes (Other)
  Sender: FDA-Public Use
  Company Number: None

PATIENT
  Age: 37 Year
  Sex: Male
  Weight: 75 kg

DRUGS (19)
  1. RENVELA 800MG 1 TAB PO WITH BREAKFAST AND 2 TABLETS WITH LUNCH AND DIN [Concomitant]
     Dates: start: 20170726
  2. DOCUSATE?SENNA 50?8.6MG 2 TABS PO BID [Concomitant]
     Dates: start: 20170726
  3. METOPROLOL TART 25MG 1 TAB PO BID [Concomitant]
     Dates: start: 20170726
  4. RENVELA [Concomitant]
     Active Substance: SEVELAMER CARBONATE
  5. ASPIRIN DR 81MG 1 TAB PO QD [Concomitant]
     Dates: start: 20170726
  6. LEVEMIR [Concomitant]
     Active Substance: INSULIN DETEMIR
  7. ATORVASTATIN 40MG 1 TAB PO QD [Concomitant]
     Dates: start: 20170726
  8. MIRALAX 3350 17 GRAM PO QD AM [Concomitant]
     Dates: start: 20170726
  9. LEVEMIR SOLUTION 30 UNITS SQ QD HS [Concomitant]
     Dates: start: 20170726
  10. DOCUSATE?SENNA [Concomitant]
  11. METOPROLOL TART [Concomitant]
     Active Substance: METOPROLOL TARTRATE
  12. MIRALAX 3350 [Concomitant]
  13. NOVOLOG [Concomitant]
     Active Substance: INSULIN ASPART
  14. SENSIPAR 60MG 1 TAB PO QD [Concomitant]
     Dates: start: 20170726
  15. ATORVASTATIN [Concomitant]
     Active Substance: ATORVASTATIN
  16. OXYCODONE ACETAMINOPHEN [Suspect]
     Active Substance: ACETAMINOPHEN\OXYCODONE HYDROCHLORIDE
     Indication: PAIN
     Dosage: ?          OTHER FREQUENCY:Q4HR PRN;?
     Route: 048
     Dates: start: 20180716, end: 20180720
  17. NOVOLOG SOLUTION 5 UNITS SQ TID AC [Concomitant]
     Dates: start: 20170726
  18. ASPIRIN. [Concomitant]
     Active Substance: ASPIRIN
  19. SENSIPAR [Concomitant]
     Active Substance: CINACALCET HYDROCHLORIDE

REACTIONS (1)
  - Vision blurred [None]

NARRATIVE: CASE EVENT DATE: 20180721
